FAERS Safety Report 6838970-4 (Version None)
Quarter: 2010Q3

REPORT INFORMATION
  Report Type: 
  Country: None (occurrence: None)
  Receive Date: 20100713
  Receipt Date: 20070928
  Transmission Date: 20110219
  Serious: No
  Sender: FDA-Public Use
  Company Number: US-PFIZER INC-2007035137

PATIENT
  Sex: Female
  Weight: 55.3 kg

DRUGS (5)
  1. CHANTIX [Suspect]
     Indication: SMOKING CESSATION THERAPY
     Route: 048
     Dates: start: 20070413, end: 20070625
  2. XANAX [Interacting]
     Indication: MUSCLE STRAIN
     Route: 048
     Dates: start: 20070401
  3. ADVIL LIQUI-GELS [Interacting]
     Indication: MUSCLE STRAIN
     Route: 048
     Dates: start: 20070401
  4. ADVIL LIQUI-GELS [Interacting]
     Indication: ARTHRALGIA
  5. ADVIL LIQUI-GELS [Interacting]
     Indication: MYALGIA

REACTIONS (10)
  - CONSTIPATION [None]
  - DEPRESSION [None]
  - DRUG EFFECT DECREASED [None]
  - DRUG INEFFECTIVE [None]
  - DRUG INTERACTION [None]
  - DYSGEUSIA [None]
  - INSOMNIA [None]
  - MUSCLE STRAIN [None]
  - NAUSEA [None]
  - UNEVALUABLE EVENT [None]
